FAERS Safety Report 15312970 (Version 1)
Quarter: 2018Q3

REPORT INFORMATION
  Report Type: Spontaneous
  Country: US (occurrence: US)
  Receive Date: 20180823
  Receipt Date: 20180823
  Transmission Date: 20181010
  Serious: Yes (Life-Threatening, Other)
  Sender: FDA-Public Use
  Company Number: US-SHIRE-US201831207

PATIENT
  Age: 27 Year

DRUGS (1)
  1. VYVANSE [Suspect]
     Active Substance: LISDEXAMFETAMINE DIMESYLATE
     Indication: DISTURBANCE IN ATTENTION
     Dosage: UNK
     Route: 065

REACTIONS (25)
  - Nightmare [Unknown]
  - Depression [Unknown]
  - Dermatillomania [Unknown]
  - Decreased appetite [Unknown]
  - Drug dependence [Unknown]
  - Aggression [Unknown]
  - Insomnia [Unknown]
  - Loss of personal independence in daily activities [Unknown]
  - Paranoia [Unknown]
  - Hyperhidrosis [Unknown]
  - Restlessness [Unknown]
  - Anxiety [Unknown]
  - Chronic fatigue syndrome [Unknown]
  - Dysphoria [Unknown]
  - Abnormal behaviour [Unknown]
  - Logorrhoea [Unknown]
  - Panic attack [Unknown]
  - Tachycardia [Unknown]
  - Tremor [Unknown]
  - Suicidal ideation [Unknown]
  - Malaise [Unknown]
  - Irritability [Unknown]
  - Rash [Unknown]
  - Anger [Unknown]
  - Mood swings [Unknown]
